FAERS Safety Report 21178195 (Version 1)
Quarter: 2022Q3

REPORT INFORMATION
  Report Type: Spontaneous
  Country: US (occurrence: US)
  Receive Date: 20220805
  Receipt Date: 20220805
  Transmission Date: 20221027
  Serious: No
  Sender: FDA-Public Use
  Company Number: US-JNJFOC-20220760178

PATIENT
  Age: 50 Year
  Sex: Female
  Weight: 68.100 kg

DRUGS (2)
  1. PONVORY [Suspect]
     Active Substance: PONESIMOD
     Indication: Multiple sclerosis
     Route: 065
     Dates: start: 20220615
  2. PONVORY [Suspect]
     Active Substance: PONESIMOD
     Route: 065
     Dates: start: 20220615

REACTIONS (2)
  - Confusional state [Unknown]
  - Pyrexia [Recovering/Resolving]

NARRATIVE: CASE EVENT DATE: 20220728
